FAERS Safety Report 7158860-X (Version None)
Quarter: 2010Q4

REPORT INFORMATION
  Report Type: 
  Country: None (occurrence: None)
  Receive Date: 20101214
  Receipt Date: 20100713
  Transmission Date: 20110411
  Serious: No
  Sender: FDA-Public Use
  Company Number: US-ASTRAZENECA-2010SE32697

PATIENT
  Age: 81 Year
  Sex: Male
  Weight: 72.6 kg

DRUGS (4)
  1. CRESTOR [Suspect]
     Indication: BLOOD CHOLESTEROL INCREASED
     Route: 048
  2. CRESTOR [Suspect]
     Route: 048
     Dates: start: 20080101
  3. CRESTOR [Suspect]
     Route: 048
  4. ACTOS [Concomitant]

REACTIONS (1)
  - DIARRHOEA [None]
